FAERS Safety Report 4634130-6 (Version None)
Quarter: 2005Q2

REPORT INFORMATION
  Report Type: 
  Country: None (occurrence: None)
  Receive Date: 20050408
  Receipt Date: 20050328
  Transmission Date: 20051028
  Serious: Yes (Other)
  Sender: FDA-Public Use
  Company Number: 200410612BYL

PATIENT
  Age: 7 Month
  Sex: Female
  Weight: 7.5 kg

DRUGS (5)
  1. GAMIMUNE N 5% [Suspect]
     Indication: KAWASAKI'S DISEASE
     Dosage: 2000 MG/KG INTRAVENOUS
     Route: 042
     Dates: start: 20041108, end: 20041109
  2. GAMIMUNE N 5% [Suspect]
     Dates: start: 20041108, end: 20041109
  3. ASPIRIN [Concomitant]
  4. ASVERIN [Concomitant]
  5. MUCODYNE [Concomitant]

REACTIONS (1)
  - HYPOTHERMIA [None]
